FAERS Safety Report 9353602 (Version 1)
Quarter: 2013Q2

REPORT INFORMATION
  Report Type: Spontaneous
  Country: US (occurrence: None)
  Receive Date: 20130617
  Receipt Date: 20130617
  Transmission Date: 20140414
  Serious: No
  Sender: FDA-Public Use
  Company Number: None

PATIENT
  Age: 59 Year
  Sex: Female

DRUGS (3)
  1. STIVARGA [Suspect]
     Indication: NEOPLASM MALIGNANT
     Dosage: 160MG, QD, PO, 21DAYS ON+7DAYS OFF
     Route: 048
     Dates: start: 20130523, end: 20130603
  2. PRILOSEC [Concomitant]
  3. PROZAC [Concomitant]

REACTIONS (4)
  - Pyrexia [None]
  - Nausea [None]
  - Asthenia [None]
  - Rash generalised [None]
